FAERS Safety Report 15947866 (Version 1)
Quarter: 2019Q1

REPORT INFORMATION
  Report Type: Spontaneous
  Country: US (occurrence: US)
  Receive Date: 20190212
  Receipt Date: 20190212
  Transmission Date: 20190417
  Serious: No
  Sender: FDA-Public Use
  Company Number: US-009507513-1902USA001938

PATIENT
  Age: 73 Year
  Sex: Female

DRUGS (1)
  1. KEYTRUDA [Suspect]
     Active Substance: PEMBROLIZUMAB
     Indication: COLORECTAL CANCER METASTATIC
     Dosage: 200 MG EVERY 3 WEEKS; 20 CYCLES
     Route: 042
     Dates: start: 20160513, end: 20170706

REACTIONS (3)
  - Off label use [Unknown]
  - Fatigue [Unknown]
  - Myalgia [Unknown]
